FAERS Safety Report 8386266-4 (Version None)
Quarter: 2012Q2

REPORT INFORMATION
  Report Type: 
  Country: None (occurrence: None)
  Receive Date: 20120525
  Receipt Date: 20120521
  Transmission Date: 20120825
  Serious: Yes (Other)
  Sender: FDA-Public Use
  Company Number: US-PFIZER INC-2012085157

PATIENT
  Sex: Female

DRUGS (4)
  1. DILANTIN [Suspect]
     Dosage: 100 MG, 3X/DAY
  2. PAROXETINE [Concomitant]
  3. HYDROXYZINE [Concomitant]
  4. OMEPRAZOLE [Concomitant]

REACTIONS (1)
  - VIITH NERVE PARALYSIS [None]
